FAERS Safety Report 9456201 (Version 1)
Quarter: 2013Q3

REPORT INFORMATION
  Report Type: Spontaneous
  Country: US (occurrence: US)
  Receive Date: 20130813
  Receipt Date: 20130813
  Transmission Date: 20140515
  Serious: Yes (Other)
  Sender: FDA-Public Use
  Company Number: US-JNJFOC-20130605253

PATIENT
  Age: 84 Year
  Sex: Female

DRUGS (8)
  1. XARELTO [Suspect]
     Indication: CEREBROVASCULAR ACCIDENT PROPHYLAXIS
     Route: 065
  2. XARELTO [Suspect]
     Indication: CEREBROVASCULAR ACCIDENT PROPHYLAXIS
     Route: 065
  3. XARELTO [Suspect]
     Indication: ATRIAL FIBRILLATION
     Route: 065
  4. XARELTO [Suspect]
     Indication: ATRIAL FIBRILLATION
     Route: 065
  5. ASPIRIN [Suspect]
     Indication: PRODUCT USED FOR UNKNOWN INDICATION
     Route: 048
  6. LISINOPRIL [Concomitant]
     Dosage: DOSE:5 (UNITS NOT SPECIFIED)
     Route: 048
  7. HCTZ [Concomitant]
     Dosage: DOSE: 12.5 (UNITS NOT SPECIFIED)
     Route: 048
  8. ATENOLOL [Concomitant]
     Dosage: DOSE: 100 (UNITS NOT SPECIFIED)
     Route: 048

REACTIONS (1)
  - Haemorrhage [Recovered/Resolved]
